FAERS Safety Report 5956008-8 (Version None)
Quarter: 2008Q4

REPORT INFORMATION
  Report Type: 
  Country: None (occurrence: None)
  Receive Date: 20081112
  Receipt Date: 20081029
  Transmission Date: 20090506
  Serious: Yes (Hospitalization, Other)
  Sender: FDA-Public Use
  Company Number: 231252K08USA

PATIENT
  Age: 21 Year
  Sex: Female

DRUGS (7)
  1. REBIF [Suspect]
     Indication: MULTIPLE SCLEROSIS
     Dates: start: 20041108, end: 20050628
  2. REBIF [Suspect]
     Indication: MULTIPLE SCLEROSIS
     Dates: start: 20060501, end: 20080315
  3. ABILITY (ARIPIPRAZOLE) [Concomitant]
  4. ACETAMINOPHEN [Concomitant]
  5. PERCOCET [Concomitant]
  6. ALCOHOL (ETHANOL) [Concomitant]
  7. ECSTASY (METHYLENEDIOXYMETHAMPHETAMINE) [Concomitant]

REACTIONS (17)
  - AFFECT LABILITY [None]
  - ALCOHOL USE [None]
  - AMNESIA [None]
  - BALANCE DISORDER [None]
  - BIPOLAR DISORDER [None]
  - BLEEDING PERIPARTUM [None]
  - BLINDNESS [None]
  - BONE PAIN [None]
  - CHLAMYDIAL INFECTION [None]
  - CONDITION AGGRAVATED [None]
  - DRUG EXPOSURE DURING PREGNANCY [None]
  - FALL [None]
  - HALLUCINATIONS, MIXED [None]
  - HYPOAESTHESIA [None]
  - LOSS OF CONSCIOUSNESS [None]
  - MANIA [None]
  - SPINAL CORD DISORDER [None]
